FAERS Safety Report 6765225-9 (Version None)
Quarter: 2010Q2

REPORT INFORMATION
  Report Type: 
  Country: None (occurrence: None)
  Receive Date: 20100610
  Receipt Date: 20100610
  Transmission Date: 20101027
  Serious: Yes (Hospitalization)
  Sender: FDA-Public Use
  Company Number: None

PATIENT
  Sex: Female
  Weight: 47 kg

DRUGS (6)
  1. PEG-L-ASPARAGINASE (PEGASPARGASE, ONCOSPAR) [Suspect]
     Dosage: 70 MG
     Dates: end: 20100512
  2. DAUNORUBICIN HCL [Suspect]
     Dosage: 105 MG
     Dates: end: 20100527
  3. METHOTREXATE [Suspect]
     Dosage: 15 MG
     Dates: end: 20100520
  4. PEG-L ASPARAGINASE (PEGASPARGASE, ONCOSPAR) [Suspect]
     Dosage: 2940 IU
     Dates: end: 20100515
  5. PREDNISONE [Suspect]
     Dosage: 1200 MG
     Dates: end: 20100527
  6. VINCRISTINE SULFATE [Suspect]
     Dosage: 6 MG
     Dates: end: 20100527

REACTIONS (10)
  - BLOOD PRESSURE DECREASED [None]
  - CHILLS [None]
  - GLYCOSYLATED HAEMOGLOBIN INCREASED [None]
  - GRAND MAL CONVULSION [None]
  - HEADACHE [None]
  - HYPERTENSION [None]
  - HYPONATRAEMIA [None]
  - INFUSION SITE EXTRAVASATION [None]
  - PYREXIA [None]
  - STAPHYLOCOCCUS TEST POSITIVE [None]
